FAERS Safety Report 20099179 (Version 1)
Quarter: 2021Q4

REPORT INFORMATION
  Report Type: Spontaneous
  Country: US (occurrence: US)
  Receive Date: 20211122
  Receipt Date: 20211122
  Transmission Date: 20220303
  Serious: Yes (Hospitalization, Other)
  Sender: FDA-Public Use
  Company Number: US-BEIGENE USA INC-BGN-2021-006047

PATIENT

DRUGS (1)
  1. BRUKINSA [Suspect]
     Active Substance: ZANUBRUTINIB
     Indication: Product used for unknown indication
     Dosage: UNK

REACTIONS (3)
  - Platelet count decreased [Recovered/Resolved]
  - Petechiae [Unknown]
  - Bullous haemorrhagic dermatosis [Unknown]
